FAERS Safety Report 7436368-1 (Version None)
Quarter: 2011Q2

REPORT INFORMATION
  Report Type: 
  Country: None (occurrence: None)
  Receive Date: 20110426
  Receipt Date: 20110413
  Transmission Date: 20111010
  Serious: No
  Sender: FDA-Public Use
  Company Number: US-BIOGENIDEC-2011BI007147

PATIENT
  Sex: Female

DRUGS (1)
  1. TYSABRI [Suspect]
     Indication: MULTIPLE SCLEROSIS
     Route: 042
     Dates: start: 20110207

REACTIONS (9)
  - BURNING SENSATION [None]
  - POLLAKIURIA [None]
  - FATIGUE [None]
  - HEADACHE [None]
  - MUSCULAR WEAKNESS [None]
  - PRURITUS GENERALISED [None]
  - NAUSEA [None]
  - MUSCULOSKELETAL PAIN [None]
  - HYPOAESTHESIA [None]
